FAERS Safety Report 9552881 (Version 1)
Quarter: 2013Q3

REPORT INFORMATION
  Report Type: Spontaneous
  Country: US (occurrence: None)
  Receive Date: 20130924
  Receipt Date: 20130924
  Transmission Date: 20140515
  Serious: Yes (Hospitalization)
  Sender: FDA-Public Use
  Company Number: None

PATIENT
  Age: 88 Year
  Sex: Female
  Weight: 64 kg

DRUGS (2)
  1. RIVAROXABAN [Suspect]
     Indication: ATRIAL FIBRILLATION
     Dosage: 1 TAB, QD, ORAL
     Route: 048
     Dates: start: 20130901, end: 20130916
  2. RIVAROXABAN [Suspect]
     Indication: THERAPY CHANGE
     Dosage: 1 TAB, QD, ORAL
     Route: 048
     Dates: start: 20130901, end: 20130916

REACTIONS (1)
  - Anaemia [None]
